FAERS Safety Report 7063183-3 (Version None)
Quarter: 2010Q4

REPORT INFORMATION
  Report Type: 
  Country: None (occurrence: None)
  Receive Date: 20101026
  Receipt Date: 20100527
  Transmission Date: 20110411
  Serious: No
  Sender: FDA-Public Use
  Company Number: US-PFIZER INC-2010067195

PATIENT
  Sex: Female
  Weight: 60 kg

DRUGS (9)
  1. LIPITOR [Suspect]
     Indication: BLOOD CHOLESTEROL INCREASED
     Dosage: 40 MG, 1X/DAY
     Route: 048
     Dates: start: 20100526, end: 20100526
  2. LEVOTHYROXINE [Concomitant]
     Indication: HYPOTHYROIDISM
     Dosage: 75 UG, 1X/DAY
     Route: 048
  3. CYTOMEL [Concomitant]
     Indication: HYPOTHYROIDISM
     Dosage: 2.5 UG, 2X/DAY
     Route: 048
  4. MS CONTIN [Concomitant]
     Indication: PAIN
     Dosage: 15 MG, 3X/DAY
     Route: 048
  5. DILAUDID [Concomitant]
     Indication: PAIN
     Dosage: 4 MG, UNK
     Route: 048
  6. ADDERALL 10 [Concomitant]
     Indication: ATTENTION DEFICIT/HYPERACTIVITY DISORDER
     Dosage: 10 MG, 1X/DAY
     Route: 048
  7. MECLIZINE [Concomitant]
     Indication: VERTIGO
     Dosage: 25 MG, AS NEEDED
     Route: 048
  8. PROMETHAZINE HYDROCHLORIDE [Concomitant]
     Indication: NAUSEA
     Dosage: 25 MG, AS NEEDED
     Route: 048
  9. PROMETHAZINE HYDROCHLORIDE [Concomitant]
     Indication: ABDOMINAL PAIN

REACTIONS (1)
  - FLATULENCE [None]
